FAERS Safety Report 5257642-3 (Version None)
Quarter: 2007Q1

REPORT INFORMATION
  Report Type: 
  Country: None (occurrence: None)
  Receive Date: 20070302
  Receipt Date: 20070216
  Transmission Date: 20070707
  Serious: Yes (Life-Threatening)
  Sender: FDA-Public Use
  Company Number: DSK-2007-00968

PATIENT
  Age: 76 Year
  Sex: Male

DRUGS (1)
  1. EVOXAC [Suspect]
     Indication: SJOGREN'S SYNDROME
     Dosage: 90 MG (30 MG, 3 IN 1 D) PER ORAL
     Route: 048
     Dates: start: 20070131, end: 20070202

REACTIONS (16)
  - BACTERIAL INFECTION [None]
  - BLOOD CREATINE PHOSPHOKINASE INCREASED [None]
  - BLOOD CREATININE INCREASED [None]
  - BLOOD PRESSURE DECREASED [None]
  - DEHYDRATION [None]
  - DEPRESSED LEVEL OF CONSCIOUSNESS [None]
  - DISCOMFORT [None]
  - HEPATIC FUNCTION ABNORMAL [None]
  - HYPERCOAGULATION [None]
  - INFLAMMATION [None]
  - MALAISE [None]
  - NAUSEA [None]
  - OLIGURIA [None]
  - SEPTIC SHOCK [None]
  - THIRST [None]
  - TRANSAMINASES INCREASED [None]
